FAERS Safety Report 8300767-6 (Version None)
Quarter: 2012Q2

REPORT INFORMATION
  Report Type: 
  Country: None (occurrence: None)
  Receive Date: 20120420
  Receipt Date: 20120417
  Transmission Date: 20120825
  Serious: Yes (Other)
  Sender: FDA-Public Use
  Company Number: PHHY2012JP032841

PATIENT

DRUGS (1)
  1. PARLODEL [Suspect]
     Dosage: 5 MG, DAILY
     Route: 048

REACTIONS (1)
  - RENAL IMPAIRMENT [None]
